FAERS Safety Report 18448097 (Version 2)
Quarter: 2020Q4

REPORT INFORMATION
  Report Type: Spontaneous
  Country: US (occurrence: US)
  Receive Date: 20201030
  Receipt Date: 20201106
  Transmission Date: 20210114
  Serious: Yes (Other)
  Sender: FDA-Public Use
  Company Number: US-JNJFOC-20201033928

PATIENT
  Age: 38 Year
  Sex: Female
  Weight: 190 kg

DRUGS (1)
  1. ELMIRON [Suspect]
     Active Substance: PENTOSAN POLYSULFATE SODIUM
     Indication: PRODUCT USED FOR UNKNOWN INDICATION
     Route: 048

REACTIONS (4)
  - COVID-19 [Unknown]
  - Sinus operation [Unknown]
  - Vision blurred [Unknown]
  - Photosensitivity reaction [Unknown]
